FAERS Safety Report 8050480-8 (Version None)
Quarter: 2012Q1

REPORT INFORMATION
  Report Type: 
  Country: None (occurrence: None)
  Receive Date: 20120117
  Receipt Date: 20120105
  Transmission Date: 20120608
  Serious: Yes (Other)
  Sender: FDA-Public Use
  Company Number: US-ASTRAZENECA-2012SE00586

PATIENT
  Age: 83 Year
  Sex: Female
  Weight: 72.6 kg

DRUGS (4)
  1. CRESTOR [Suspect]
     Indication: BLOOD CHOLESTEROL
     Route: 048
  2. NIFEDIPINE [Concomitant]
  3. LISINOPRIL [Suspect]
     Dosage: TWO TIMES A DAY
     Route: 048
  4. METFORMIN HCL [Concomitant]

REACTIONS (5)
  - ABASIA [None]
  - DRUG DOSE OMISSION [None]
  - MALAISE [None]
  - DRUG DISPENSING ERROR [None]
  - BACK PAIN [None]
